FAERS Safety Report 9569914 (Version 2)
Quarter: 2013Q3

REPORT INFORMATION
  Report Type: Spontaneous
  Country: US (occurrence: US)
  Receive Date: 20130930
  Receipt Date: 20130930
  Transmission Date: 20140515
  Serious: No
  Sender: FDA-Public Use
  Company Number: US-AMGEN-USASP2013051203

PATIENT
  Age: 59 Year
  Sex: Female
  Weight: 102.4 kg

DRUGS (27)
  1. ENBREL [Suspect]
     Indication: PRODUCT USED FOR UNKNOWN INDICATION
     Dosage: 50 MG, QWK
     Route: 058
  2. ADVAIR HFA [Concomitant]
     Dosage: 45/21, UNK
  3. FEXOFENADINE [Concomitant]
     Dosage: 30 MG, UNK
  4. LEVOXYL [Concomitant]
     Dosage: 100 MUG, UNK
  5. CYTOMEL [Concomitant]
     Dosage: 25 MUG, UNK
  6. ATIVAN [Concomitant]
     Dosage: 1 MG, UNK
  7. GABAPENTIN [Concomitant]
     Dosage: 100 MG, UNK
  8. SUBOXONE [Concomitant]
     Dosage: 2-0.5, UNK
  9. LACTULOSE [Concomitant]
     Dosage: 10 GM/15, UNK
  10. PROTONIX [Concomitant]
     Dosage: 20 MG, UNK
  11. FUROSEMIDE [Concomitant]
     Dosage: 20 MG, UNK
  12. POTASSIUM CHLORIDE [Concomitant]
     Dosage: 10 MEQ, UNK
  13. LIPITOR [Concomitant]
     Dosage: 10 MG, UNK
  14. VALTREX [Concomitant]
     Dosage: 1 MG, UNK
  15. PREDNISONE [Concomitant]
     Dosage: 1 MG, UNK
  16. CELEBREX [Concomitant]
     Dosage: 100 MG, UNK
  17. RESTASIS [Concomitant]
     Dosage: 0.05 %, UNK
  18. OASIS [Concomitant]
     Dosage: UNK
  19. MAXALT                             /01406501/ [Concomitant]
     Dosage: 10 MG, UNK
  20. LIDEX [Concomitant]
     Dosage: 0.05 %, UNK
  21. AZELEX [Concomitant]
     Dosage: 20 %, UNK
  22. SULFACETAMID [Concomitant]
     Dosage: 10 %, UNK
  23. VITAMIN D                          /00107901/ [Concomitant]
     Dosage: 1000 UNIT, UNK
  24. PROVENTIL                          /00139501/ [Concomitant]
     Dosage: UNK
  25. VICODIN [Concomitant]
     Dosage: 5-300, UNK
  26. LIDOCAINE [Concomitant]
     Dosage: 3 %, UNK
  27. EPIPEN [Concomitant]
     Dosage: 0.3 MG, UNK

REACTIONS (6)
  - Rash [Unknown]
  - Rash erythematous [Unknown]
  - Acne [Unknown]
  - Injection site erythema [Unknown]
  - Injection site pruritus [Unknown]
  - Injection site urticaria [Unknown]
